FAERS Safety Report 10991942 (Version 1)
Quarter: 2015Q2

REPORT INFORMATION
  Report Type: Report from Study
  Country: US (occurrence: US)
  Receive Date: 20150406
  Receipt Date: 20150406
  Transmission Date: 20150821
  Serious: Yes (Hospitalization, Other)
  Sender: FDA-Public Use
  Company Number: US-GILEAD-2015-0147038

PATIENT
  Age: 65 Year
  Sex: Female

DRUGS (1)
  1. AMBRISENTAN [Suspect]
     Active Substance: AMBRISENTAN
     Indication: PRODUCT USED FOR UNKNOWN INDICATION
     Dosage: 10 MG, QD
     Route: 065
     Dates: start: 20141008

REACTIONS (7)
  - Fluid retention [Unknown]
  - Pulmonary arterial hypertension [Unknown]
  - Syncope [Unknown]
  - Dehydration [Unknown]
  - Peripheral swelling [Unknown]
  - Unevaluable event [Unknown]
  - Constipation [Unknown]
